FAERS Safety Report 15638614 (Version 1)
Quarter: 2018Q4

REPORT INFORMATION
  Report Type: Spontaneous
  Country: US (occurrence: US)
  Receive Date: 20181120
  Receipt Date: 20181120
  Transmission Date: 20190205
  Serious: Yes (Other)
  Sender: FDA-Public Use
  Company Number: US-JNJFOC-20180819159

PATIENT
  Age: 74 Year
  Sex: Male

DRUGS (9)
  1. VITAMIN B12 [Concomitant]
     Active Substance: CYANOCOBALAMIN
  2. AMLODIPINE [Concomitant]
     Active Substance: AMLODIPINE BESYLATE
  3. LOSARTAN. [Concomitant]
     Active Substance: LOSARTAN
  4. KLOR-CON [Concomitant]
     Active Substance: POTASSIUM CHLORIDE
  5. IMBRUVICA [Suspect]
     Active Substance: IBRUTINIB
     Indication: CHRONIC LYMPHOCYTIC LEUKAEMIA
     Dates: start: 201803, end: 201805
  6. TOCOPHEROL [Concomitant]
     Active Substance: TOCOPHEROL
  7. IMBRUVICA [Suspect]
     Active Substance: IBRUTINIB
     Indication: CHRONIC LYMPHOCYTIC LEUKAEMIA
     Dates: start: 20180510, end: 201807
  8. ASPIRIN. [Concomitant]
     Active Substance: ASPIRIN
  9. VITAMIN C [Concomitant]
     Active Substance: ASCORBIC ACID

REACTIONS (3)
  - Haematuria [Recovered/Resolved with Sequelae]
  - Disease progression [Unknown]
  - Bladder cancer [Unknown]

NARRATIVE: CASE EVENT DATE: 20180504
